FAERS Safety Report 5946216-4 (Version None)
Quarter: 2008Q4

REPORT INFORMATION
  Report Type: 
  Country: None (occurrence: None)
  Receive Date: 20081106
  Receipt Date: 20081106
  Transmission Date: 20090506
  Serious: No
  Sender: FDA-Public Use
  Company Number: None

PATIENT
  Age: 24 Year
  Sex: Female
  Weight: 89.8122 kg

DRUGS (1)
  1. NECON 1/35 WATSON [Suspect]
     Indication: CONTRACEPTION
     Dosage: 1 DAILY PO
     Route: 048
     Dates: start: 20081102, end: 20081103

REACTIONS (2)
  - MALAISE [None]
  - NAUSEA [None]
